FAERS Safety Report 8834625 (Version 6)
Quarter: 2016Q4

REPORT INFORMATION
  Report Type: Report from Study
  Country: CA (occurrence: CA)
  Receive Date: 20121010
  Receipt Date: 20161013
  Transmission Date: 20170207
  Serious: Yes (Hospitalization, Other)
  Sender: FDA-Public Use
  Company Number: CA-ROCHE-1141879

PATIENT
  Age: 71 Year
  Sex: Female
  Weight: 34.2 kg

DRUGS (6)
  1. ACTEMRA [Suspect]
     Active Substance: TOCILIZUMAB
     Indication: RHEUMATOID ARTHRITIS
     Route: 042
     Dates: start: 20110823
  2. ACLASTA [Concomitant]
     Active Substance: ZOLEDRONIC ACID
  3. NIFEDIPINE. [Concomitant]
     Active Substance: NIFEDIPINE
  4. ACTEMRA [Suspect]
     Active Substance: TOCILIZUMAB
     Route: 042
     Dates: start: 20130326
  5. SULFASALAZINE. [Concomitant]
     Active Substance: SULFASALAZINE
     Indication: RHEUMATOID ARTHRITIS
     Route: 048
     Dates: start: 2011
  6. ACTEMRA [Suspect]
     Active Substance: TOCILIZUMAB
     Route: 042
     Dates: start: 20131015

REACTIONS (14)
  - Hyperhidrosis [Recovering/Resolving]
  - Vomiting [Recovered/Resolved]
  - Dizziness [Recovering/Resolving]
  - Fluid retention [Recovered/Resolved]
  - Fall [Unknown]
  - Dehydration [Recovering/Resolving]
  - Headache [Unknown]
  - Arthralgia [Unknown]
  - Vomiting [Recovering/Resolving]
  - Weight decreased [Unknown]
  - Joint swelling [Unknown]
  - Pain in extremity [Recovered/Resolved]
  - Peripheral swelling [Recovered/Resolved]
  - Loss of consciousness [Recovering/Resolving]

NARRATIVE: CASE EVENT DATE: 20120910
